FAERS Safety Report 9954081 (Version 1)
Quarter: 2014Q1

REPORT INFORMATION
  Report Type: Spontaneous
  Country: GB (occurrence: GB)
  Receive Date: 20140304
  Receipt Date: 20140304
  Transmission Date: 20141002
  Serious: Yes (Other)
  Sender: FDA-Public Use
  Company Number: GB-B.I. PHARMACEUTICALS,INC./RIDGEFIELD-2014-BI-08488UK

PATIENT
  Age: 66 Year
  Sex: Male

DRUGS (7)
  1. PRADAXA [Suspect]
     Indication: ATRIAL FIBRILLATION
     Dosage: 300 NR
     Route: 048
     Dates: end: 20131130
  2. ALLOPURINOL [Concomitant]
     Dosage: 300 MG
     Route: 048
  3. ASPIRIN [Concomitant]
     Dosage: 81 MG
     Route: 048
  4. EZETIMBE [Concomitant]
     Dosage: 10 MG
     Route: 048
  5. METOPROLOL [Concomitant]
     Dosage: 100 MG
     Route: 048
  6. OMEPRAZOLE [Concomitant]
     Dosage: 20 MG
     Route: 048
  7. ROSUVASTATIN [Concomitant]
     Dosage: 20 MG
     Route: 048

REACTIONS (1)
  - Lacunar infarction [Not Recovered/Not Resolved]
